FAERS Safety Report 19630207 (Version 1)
Quarter: 2021Q3

REPORT INFORMATION
  Report Type: Spontaneous
  Country: CA (occurrence: CA)
  Receive Date: 20210728
  Receipt Date: 20210728
  Transmission Date: 20211014
  Serious: Yes (Death)
  Sender: FDA-Public Use
  Company Number: CA-PFIZER INC-2021894401

PATIENT
  Age: 73 Year

DRUGS (1)
  1. BRAFTOVI [Suspect]
     Active Substance: ENCORAFENIB

REACTIONS (1)
  - Death [Fatal]
